FAERS Safety Report 6159198-X (Version None)
Quarter: 2009Q2

REPORT INFORMATION
  Report Type: 
  Country: None (occurrence: None)
  Receive Date: 20090414
  Receipt Date: 20090326
  Transmission Date: 20091009
  Serious: Yes (Death, Hospitalization)
  Sender: FDA-Public Use
  Company Number: 14561393

PATIENT
  Age: 70 Year
  Sex: Female

DRUGS (4)
  1. CEFAMOX (CEFADROXIL MONOHYDRATE) [Suspect]
     Dosage: ORAL
     Route: 048
     Dates: start: 20090302, end: 20090305
  2. PIPERACILLIN AND TAZOBACTAM [Suspect]
     Dosage: 12 GRAM 1 DAY IV
     Route: 042
     Dates: start: 20090127, end: 20090301
  3. METRONIDAZOLE [Suspect]
     Dosage: ORAL
     Route: 048
     Dates: start: 20090218, end: 20090304
  4. CIPROFLOXACIN HCL [Suspect]
     Dosage: ORAL
     Route: 048
     Dates: start: 20090218, end: 20090226

REACTIONS (4)
  - APPENDICEAL ABSCESS [None]
  - APPENDICITIS PERFORATED [None]
  - HEPATIC FAILURE [None]
  - PELVIC ABSCESS [None]
